FAERS Safety Report 6840161-8 (Version None)
Quarter: 2010Q2

REPORT INFORMATION
  Report Type: 
  Country: None (occurrence: None)
  Receive Date: 20100629
  Receipt Date: 20100301
  Transmission Date: 20101027
  Serious: No
  Sender: FDA-Public Use
  Company Number: US-WYE-H13913510

PATIENT
  Age: 53 Year
  Sex: Male
  Weight: 54.48 kg

DRUGS (4)
  1. PRISTIQ [Suspect]
     Indication: DEPRESSION
     Dosage: 50 MG 1X PER 1 DAY, ORAL
     Route: 048
     Dates: start: 20081101, end: 20090101
  2. PRISTIQ [Suspect]
     Dosage: ^STARTED CUTTING IT IN HALF^, ORAL
     Route: 048
     Dates: start: 20100201
  3. PRISTIQ [Suspect]
     Dosage: 50 MG 1X PER 1 DAY, ORAL
     Route: 048
     Dates: start: 20100209, end: 20100201
  4. PROVIGIL [Concomitant]

REACTIONS (1)
  - RECTAL HAEMORRHAGE [None]
